FAERS Safety Report 17440117 (Version 1)
Quarter: 2020Q1

REPORT INFORMATION
  Report Type: Spontaneous
  Country: US (occurrence: US)
  Receive Date: 20200219
  Receipt Date: 20200219
  Transmission Date: 20200409
  Serious: No
  Sender: FDA-Public Use
  Company Number: None

PATIENT

DRUGS (2)
  1. LEVETIRACETAM ER [Suspect]
     Active Substance: LEVETIRACETAM
  2. LEVETIRACETAM. [Suspect]
     Active Substance: LEVETIRACETAM

REACTIONS (4)
  - Circumstance or information capable of leading to medication error [None]
  - Product selection error [None]
  - Product identification number issue [None]
  - Product confusion [None]
